FAERS Safety Report 18677389 (Version 1)
Quarter: 2020Q4

REPORT INFORMATION
  Report Type: Spontaneous
  Country: ID (occurrence: ID)
  Receive Date: 20201229
  Receipt Date: 20201229
  Transmission Date: 20210114
  Serious: Yes (Hospitalization)
  Sender: FDA-Public Use
  Company Number: ID-STRIDES ARCOLAB LIMITED-2020SP016322

PATIENT
  Age: 63 Year
  Sex: Male

DRUGS (6)
  1. NORMAL SALINE [Suspect]
     Active Substance: SODIUM CHLORIDE
     Indication: LUMBAR SPINAL STENOSIS
  2. BUPIVACAINE. [Suspect]
     Active Substance: BUPIVACAINE
     Indication: LUMBAR SPINAL STENOSIS
  3. NORMAL SALINE [Suspect]
     Active Substance: SODIUM CHLORIDE
     Indication: SPONDYLOLISTHESIS
     Dosage: 10 MILLILITER, UNK, EPIDURAL CAUDAL SACRAL INJECTION
     Route: 008
  4. TRIAMCINOLONE ACETONIDE. [Suspect]
     Active Substance: TRIAMCINOLONE ACETONIDE
     Indication: SPONDYLOLISTHESIS
     Dosage: 40 MILLIGRAM, UNK, EPIDURAL CAUDAL SACRAL INJECTION
     Route: 008
  5. BUPIVACAINE. [Suspect]
     Active Substance: BUPIVACAINE
     Indication: SPONDYLOLISTHESIS
     Dosage: 8 MILLILITER OF 0.25 PERCENT, UNK, EPIDURAL CAUDAL SACRAL INJECTION
     Route: 008
  6. TRIAMCINOLONE ACETONIDE. [Suspect]
     Active Substance: TRIAMCINOLONE ACETONIDE
     Indication: LUMBAR SPINAL STENOSIS

REACTIONS (1)
  - Cauda equina syndrome [Recovered/Resolved]
